FAERS Safety Report 26171519 (Version 2)
Quarter: 2025Q4

REPORT INFORMATION
  Report Type: Report from Study
  Country: EU (occurrence: EU)
  Receive Date: 20251217
  Receipt Date: 20251229
  Transmission Date: 20260118
  Serious: Yes (Hospitalization)
  Sender: ELI LILLY AND COMPANY
  Company Number: EU-ELI_LILLY_AND_COMPANY-DE202512020755

PATIENT
  Age: 29 Year
  Sex: Male
  Weight: 95 kg

DRUGS (7)
  1. LEBRIKIZUMAB [Suspect]
     Active Substance: LEBRIKIZUMAB
     Indication: Dermatitis atopic
     Dosage: 500 MG, INITIAL DOSE
     Route: 058
     Dates: start: 20251201, end: 20251210
  2. PREDNISOLONE [Concomitant]
     Active Substance: PREDNISOLONE
     Indication: Product used for unknown indication
     Dosage: 50 MG, DAILY ONCE IN MORNING
     Route: 065
     Dates: start: 20251212
  3. PREDNISOLONE [Concomitant]
     Active Substance: PREDNISOLONE
     Dosage: 10 MG IN EVERY TWO DAYS THEN 5 MG, THEN DISCONTINUE
     Route: 065
  4. FEXOFENADINE [Concomitant]
     Active Substance: FEXOFENADINE HYDROCHLORIDE
     Indication: Pruritus
     Dosage: 180 MG, QID
     Route: 065
  5. MOMETASONE FUROATE [Concomitant]
     Active Substance: MOMETASONE FUROATE
     Indication: Pruritus
     Dosage: ONCE DAILY ALTERNATING WITH PROTOPIC
     Route: 065
  6. PROTOPIC [Concomitant]
     Active Substance: TACROLIMUS
     Indication: Pruritus
     Dosage: ONCE DAILY FOR 1 WEEK THEN ONCE DAILY FOR 1 WEEK AND ONCE DAILY ON 2-3 DAYS PER WEEK
     Route: 065
  7. CLOBEX [Concomitant]
     Active Substance: CLOBETASOL PROPIONATE
     Indication: Pruritus
     Dosage: ON THE SCALP ON 2-3 DAYS PER WEEK
     Route: 065

REACTIONS (1)
  - Rash maculo-papular [Recovering/Resolving]

NARRATIVE: CASE EVENT DATE: 20251201
